FAERS Safety Report 7995819-4 (Version None)
Quarter: 2011Q4

REPORT INFORMATION
  Report Type: 
  Country: None (occurrence: None)
  Receive Date: 20111220
  Receipt Date: 20111213
  Transmission Date: 20120403
  Serious: No
  Sender: FDA-Public Use
  Company Number: US-JNJFOC-20111205932

PATIENT
  Sex: Female
  Weight: 95.26 kg

DRUGS (10)
  1. DURAGESIC-100 [Suspect]
     Indication: INTERVERTEBRAL DISC PROTRUSION
     Route: 062
     Dates: start: 20110101
  2. LEVOTHROID [Concomitant]
     Indication: HYPOTHYROIDISM
     Route: 048
  3. LIPITOR [Concomitant]
     Indication: BLOOD CHOLESTEROL INCREASED
     Route: 048
  4. OXYCODONE HCL [Concomitant]
     Indication: BREAKTHROUGH PAIN
     Route: 048
  5. DURAGESIC-100 [Suspect]
     Indication: TENDON RUPTURE
     Route: 062
     Dates: start: 20110101
  6. DURAGESIC-100 [Suspect]
     Route: 062
     Dates: start: 20110101, end: 20110101
  7. UNKNOWN MEDICATION [Concomitant]
     Indication: HYPERTENSION
     Route: 048
  8. DURAGESIC-100 [Suspect]
     Route: 062
     Dates: start: 20110101, end: 20110101
  9. DURAGESIC-100 [Suspect]
     Route: 062
     Dates: start: 20110101, end: 20110101
  10. DURAGESIC-100 [Suspect]
     Indication: CHONDROPATHY
     Route: 062
     Dates: start: 20110101

REACTIONS (2)
  - PRODUCT ADHESION ISSUE [None]
  - WRONG TECHNIQUE IN DRUG USAGE PROCESS [None]
